FAERS Safety Report 9920011 (Version 1)
Quarter: 2014Q1

REPORT INFORMATION
  Report Type: Spontaneous
  Country: GB (occurrence: GB)
  Receive Date: 20140224
  Receipt Date: 20140224
  Transmission Date: 20141002
  Serious: Yes (Other)
  Sender: FDA-Public Use
  Company Number: GB-BANPHARM-20142164

PATIENT
  Age: 44 Year
  Sex: Female

DRUGS (3)
  1. IBUPROFEN UNKNOWN PRODUCT [Suspect]
     Indication: ROAD TRAFFIC ACCIDENT
     Dosage: QD,
     Route: 048
  2. PARACETAMOL [Concomitant]
  3. CITALOPRAM [Concomitant]

REACTIONS (4)
  - Renal tubular acidosis [Recovering/Resolving]
  - Nephrocalcinosis [Not Recovered/Not Resolved]
  - Drug abuse [Unknown]
  - Hypokalaemia [Recovering/Resolving]
